FAERS Safety Report 17748191 (Version 1)
Quarter: 2020Q2

REPORT INFORMATION
  Report Type: Spontaneous
  Country: US (occurrence: US)
  Receive Date: 20200505
  Receipt Date: 20200505
  Transmission Date: 20200714
  Serious: No
  Sender: FDA-Public Use
  Company Number: US-ROCHE-2488503

PATIENT
  Sex: Male

DRUGS (1)
  1. ESBRIET [Suspect]
     Active Substance: PIRFENIDONE
     Indication: IDIOPATHIC PULMONARY FIBROSIS
     Route: 048
     Dates: start: 20190201

REACTIONS (4)
  - Skin disorder [Recovered/Resolved]
  - Hyperaesthesia [Recovered/Resolved]
  - Sunburn [Recovered/Resolved]
  - Skin exfoliation [Recovered/Resolved]
